FAERS Safety Report 18251220 (Version 1)
Quarter: 2020Q3

REPORT INFORMATION
  Report Type: Spontaneous
  Country: AR (occurrence: AR)
  Receive Date: 20200910
  Receipt Date: 20200910
  Transmission Date: 20201103
  Serious: Yes (Other)
  Sender: FDA-Public Use
  Company Number: AR-PFIZER INC-2020349303

PATIENT
  Age: 78 Year
  Sex: Male

DRUGS (1)
  1. SUTENT [Suspect]
     Active Substance: SUNITINIB MALATE
     Indication: METASTATIC RENAL CELL CARCINOMA
     Dosage: UNSPECIFIED DOSE, DAILY
     Dates: start: 20191025

REACTIONS (4)
  - Deafness [Unknown]
  - Cataract [Unknown]
  - Blindness [Unknown]
  - Nodule [Unknown]

NARRATIVE: CASE EVENT DATE: 2020
